FAERS Safety Report 21358372 (Version 1)
Quarter: 2022Q3

REPORT INFORMATION
  Report Type: Spontaneous
  Country: US (occurrence: None)
  Receive Date: 20220920
  Receipt Date: 20220920
  Transmission Date: 20221027
  Serious: No
  Sender: FDA-Public Use
  Company Number: None

PATIENT
  Sex: Female

DRUGS (1)
  1. OTEZLA [Suspect]
     Active Substance: APREMILAST
     Indication: Systemic scleroderma
     Dosage: FREQUENCY : TWICE A DAY;?
     Route: 048
     Dates: start: 202208

REACTIONS (3)
  - Flatulence [None]
  - Abdominal distension [None]
  - Gastrooesophageal reflux disease [None]
